FAERS Safety Report 7635362-5 (Version None)
Quarter: 2011Q3

REPORT INFORMATION
  Report Type: 
  Country: None (occurrence: None)
  Receive Date: 20110726
  Receipt Date: 20110523
  Transmission Date: 20111222
  Serious: No
  Sender: FDA-Public Use
  Company Number: US-GLAXOSMITHKLINE-A0928570A

PATIENT
  Age: 37 Year
  Sex: Male

DRUGS (1)
  1. EXTINA [Suspect]
     Indication: FUNGAL SKIN INFECTION
     Dosage: 1APP PER DAY
     Route: 061
     Dates: start: 20110520, end: 20110520

REACTIONS (3)
  - BURNING SENSATION [None]
  - SKIN IRRITATION [None]
  - ERYTHEMA [None]
